FAERS Safety Report 17816346 (Version 2)
Quarter: 2020Q3

REPORT INFORMATION
  Report Type: Spontaneous
  Country: US (occurrence: US)
  Receive Date: 20200522
  Receipt Date: 20200814
  Transmission Date: 20201102
  Serious: Yes (Other)
  Sender: FDA-Public Use
  Company Number: US-009507513-2005USA006819

PATIENT
  Sex: Female

DRUGS (19)
  1. COMPAZINE [Suspect]
     Active Substance: PROCHLORPERAZINE MALEATE
     Dosage: UNK
     Route: 048
  2. SYNTHROID [Suspect]
     Active Substance: LEVOTHYROXINE SODIUM
  3. GABAPENTIN. [Suspect]
     Active Substance: GABAPENTIN
  4. LENVATINIB MESYLATE [Suspect]
     Active Substance: LENVATINIB MESYLATE
     Indication: ENDOMETRIAL NEOPLASM
     Dosage: 20 MG (2X10 MG), DAILY (5 DAY PACK)
     Route: 048
     Dates: start: 202004
  5. LENVATINIB MESYLATE [Suspect]
     Active Substance: LENVATINIB MESYLATE
     Dosage: 14 MILLIGRAM
  6. COREG [Suspect]
     Active Substance: CARVEDILOL
     Dosage: UNK
     Route: 048
     Dates: start: 20200517
  7. HUMULIN 70/30 [Suspect]
     Active Substance: INSULIN HUMAN
     Dosage: 70?30/ML VIAL
  8. NORVASC [Suspect]
     Active Substance: AMLODIPINE BESYLATE
     Dosage: UNK
     Route: 048
  9. MEGACE ES [Suspect]
     Active Substance: MEGESTROL ACETATE
     Dosage: 625 MG/5 ML
  10. BENADRYL [Suspect]
     Active Substance: DIPHENHYDRAMINE HYDROCHLORIDE
     Dosage: UNK
  11. PYRIDOXINE [Suspect]
     Active Substance: PYRIDOXINE
     Dosage: UNK
     Route: 048
  12. TYLENOL [Suspect]
     Active Substance: ACETAMINOPHEN
     Dosage: UNK
     Route: 048
  13. KEYTRUDA [Suspect]
     Active Substance: PEMBROLIZUMAB
     Indication: ENDOMETRIAL CANCER
     Dosage: 100 MG/4 ML VIAL
  14. METFORMIN HYDROCHLORIDE. [Suspect]
     Active Substance: METFORMIN HYDROCHLORIDE
     Dosage: UNK
     Route: 048
  15. R?LIPOIC ACID (DIETARY SUPPLEMENT) [Suspect]
     Active Substance: DIETARY SUPPLEMENT
  16. METFORMIN [Suspect]
     Active Substance: METFORMIN HYDROCHLORIDE
  17. LOVENOX [Suspect]
     Active Substance: ENOXAPARIN SODIUM
     Dosage: STRENGTH: 100 MG/ML, SYRINGE
  18. PRAVASTATIN SODIUM. [Suspect]
     Active Substance: PRAVASTATIN SODIUM
     Dosage: UNK
     Route: 048
  19. ZOFRAN [Suspect]
     Active Substance: ONDANSETRON HYDROCHLORIDE
     Dosage: UNK
     Route: 048

REACTIONS (7)
  - Gait disturbance [Unknown]
  - Vertigo [Unknown]
  - Neuropathy peripheral [Unknown]
  - Amnesia [Unknown]
  - Hypersomnia [Unknown]
  - Confusional state [Unknown]
  - Memory impairment [Unknown]
